FAERS Safety Report 6311900-X (Version None)
Quarter: 2009Q3

REPORT INFORMATION
  Report Type: 
  Country: None (occurrence: None)
  Receive Date: 20090817
  Receipt Date: 20090813
  Transmission Date: 20100115
  Serious: Yes (Life-Threatening)
  Sender: FDA-Public Use
  Company Number: FR-ASTRAZENECA-2009SE07978

PATIENT
  Age: 9997 Day
  Sex: Female

DRUGS (6)
  1. XYLOCAINE [Suspect]
     Indication: SPINAL ANAESTHESIA
     Dosage: 40 MG/ML ONCE
     Route: 037
     Dates: start: 20090416, end: 20090416
  2. MARCAINE [Suspect]
     Indication: SPINAL ANAESTHESIA
     Route: 037
     Dates: start: 20090416, end: 20090416
  3. MIDAZOLAM AGUETTANT [Suspect]
     Route: 042
     Dates: start: 20090416, end: 20090416
  4. CEPHAZOLINE PANPHARMA [Suspect]
     Route: 042
     Dates: start: 20090416, end: 20090416
  5. MORPHINE [Suspect]
     Route: 065
     Dates: start: 20090416, end: 20090416
  6. SUFENTA PRESERVATIVE FREE [Suspect]
     Dosage: 5UG ONCE FROM 50UG/10ML
     Route: 042
     Dates: start: 20090416, end: 20090416

REACTIONS (1)
  - ANAPHYLACTIC SHOCK [None]
